FAERS Safety Report 13763303 (Version 6)
Quarter: 2018Q1

REPORT INFORMATION
  Report Type: Report from Study
  Country: AR (occurrence: AR)
  Receive Date: 20170718
  Receipt Date: 20180108
  Transmission Date: 20180508
  Serious: Yes (Other)
  Sender: FDA-Public Use
  Company Number: AR-EMD SERONO-E2B_80068510

PATIENT
  Age: 8 Year
  Sex: Male

DRUGS (3)
  1. SALBUTAMOL [Concomitant]
     Active Substance: ALBUTEROL
     Indication: BRONCHOSPASM
     Dosage: INHALER
     Dates: start: 2009
  2. SAIZEN [Suspect]
     Active Substance: SOMATROPIN
     Indication: GROWTH HORMONE DEFICIENCY
     Route: 058
     Dates: start: 20170428
  3. SAIZEN [Suspect]
     Active Substance: SOMATROPIN
     Route: 058
     Dates: start: 20170505, end: 20170622

REACTIONS (3)
  - Pallor [Unknown]
  - Idiopathic intracranial hypertension [Recovering/Resolving]
  - Fear of injection [Unknown]

NARRATIVE: CASE EVENT DATE: 201705
